FAERS Safety Report 10598119 (Version 1)
Quarter: 2014Q4

REPORT INFORMATION
  Report Type: Spontaneous
  Country: US (occurrence: US)
  Receive Date: 20141121
  Receipt Date: 20141121
  Transmission Date: 20150529
  Serious: No
  Sender: FDA-Public Use
  Company Number: US-PFIZER INC-2014319978

PATIENT
  Age: 37 Year
  Sex: Female
  Weight: 58.96 kg

DRUGS (2)
  1. NORGESTIMATE [Concomitant]
     Active Substance: NORGESTIMATE
     Indication: ORAL CONTRACEPTION
     Dosage: 0.25 MG, 1X/DAY
  2. DESVENLAFAXINE SUCCINATE MONOHYDRATE [Suspect]
     Active Substance: DESVENLAFAXINE
     Indication: MAJOR DEPRESSION
     Dosage: 100 MG, 1X/DAY
     Route: 048
     Dates: start: 201303

REACTIONS (1)
  - Drug withdrawal syndrome [Not Recovered/Not Resolved]

NARRATIVE: CASE EVENT DATE: 20141117
